FAERS Safety Report 10812153 (Version 2)
Quarter: 2015Q1

REPORT INFORMATION
  Report Type: Spontaneous
  Country: GR (occurrence: None)
  Receive Date: 20150212
  Receipt Date: 20150220
  Transmission Date: 20150721
  Serious: Yes (Hospitalization)
  Sender: FDA-Public Use
  Company Number: 8007883

PATIENT
  Age: 12 Year
  Sex: Female

DRUGS (1)
  1. EUTHYROX [Suspect]
     Active Substance: LEVOTHYROXINE SODIUM
     Indication: PRODUCT USED FOR UNKNOWN INDICATION
     Dosage: 4 TABLETS AS SINGLE OVERDOSE, ORAL
     Route: 048
     Dates: start: 20150131, end: 20150131

REACTIONS (2)
  - Intentional product misuse [None]
  - Suicide attempt [None]

NARRATIVE: CASE EVENT DATE: 20150131
